FAERS Safety Report 5862210-6 (Version None)
Quarter: 2008Q3

REPORT INFORMATION
  Report Type: 
  Country: None (occurrence: None)
  Receive Date: 20080828
  Receipt Date: 20080818
  Transmission Date: 20090109
  Serious: Yes (Hospitalization)
  Sender: FDA-Public Use
  Company Number: FR-JNJFOC-20080803693

PATIENT
  Age: 73 Year
  Sex: Female

DRUGS (13)
  1. OFLOCET [Suspect]
     Indication: UTERINE DILATION AND CURETTAGE
  2. HYDREA [Suspect]
     Route: 048
  3. HYDREA [Suspect]
     Route: 048
  4. HYDREA [Suspect]
     Indication: POLYCYTHAEMIA VERA
     Dosage: INTIAL PO 1 TABLET/D(1000 MG/2000 MG CAP/DAY).ON AN UNSPECIFIED DATE IT WAS INCREASED FROM 1-2 TABS.
     Route: 048
  5. IMOVANE [Concomitant]
     Route: 048
  6. ANTIVITAMIN K [Concomitant]
     Indication: UTERINE DILATION AND CURETTAGE
  7. ALDACTONE [Concomitant]
     Route: 048
  8. LASIX [Concomitant]
     Route: 048
  9. CALCIPRAT [Concomitant]
     Route: 048
  10. PREVISCAN [Concomitant]
  11. FORLAX [Concomitant]
     Route: 048
  12. IXPRIM [Concomitant]
     Route: 048
  13. LOW MOLECULAR WEIGHT HEPARIN [Concomitant]

REACTIONS (6)
  - CARDIAC MURMUR [None]
  - DISSEMINATED INTRAVASCULAR COAGULATION [None]
  - INAPPROPRIATE SCHEDULE OF DRUG ADMINISTRATION [None]
  - RALES [None]
  - SELF-MEDICATION [None]
  - THROMBOCYTOPENIA [None]
